FAERS Safety Report 24145657 (Version 1)
Quarter: 2024Q3

REPORT INFORMATION
  Report Type: Spontaneous
  Country: US (occurrence: US)
  Receive Date: 20240729
  Receipt Date: 20240729
  Transmission Date: 20241017
  Serious: Yes (Hospitalization, Other)
  Sender: PURACAP
  Company Number: US-PURACAP-US-2024EPCLIT00875

PATIENT
  Age: 65 Year
  Sex: Female

DRUGS (3)
  1. AMLODIPINE [Suspect]
     Active Substance: AMLODIPINE BESYLATE
     Indication: Product used for unknown indication
     Route: 048
  2. LISINOPRIL [Suspect]
     Active Substance: LISINOPRIL
     Indication: Product used for unknown indication
     Route: 048
  3. VALPROATE SODIUM [Suspect]
     Active Substance: VALPROATE SODIUM
     Indication: Product used for unknown indication
     Route: 048

REACTIONS (8)
  - Vasoplegia syndrome [Recovering/Resolving]
  - Lactic acidosis [Recovering/Resolving]
  - Condition aggravated [Recovering/Resolving]
  - Hyperglycaemia [Recovering/Resolving]
  - Leukocytosis [Recovering/Resolving]
  - Blood creatinine increased [Recovering/Resolving]
  - Somnolence [Recovering/Resolving]
  - Intentional overdose [Unknown]
